FAERS Safety Report 6905086-8 (Version None)
Quarter: 2010Q3

REPORT INFORMATION
  Report Type: 
  Country: None (occurrence: None)
  Receive Date: 20100804
  Receipt Date: 20090914
  Transmission Date: 20110219
  Serious: No
  Sender: FDA-Public Use
  Company Number: US-PFIZER INC-2009234145

PATIENT
  Sex: Female
  Weight: 70.3 kg

DRUGS (7)
  1. LYRICA [Suspect]
     Indication: CERVIX DISORDER
     Dosage: 50 MG, 1X/DAY
     Dates: start: 20090511
  2. LYRICA [Suspect]
     Indication: HEADACHE
     Dosage: 50 MG, 2X/DAY
     Dates: end: 20090601
  3. LYRICA [Suspect]
     Indication: NECK PAIN
  4. CLONAZEPAM [Concomitant]
     Dosage: UNK
  5. LORAZEPAM [Concomitant]
     Dosage: UNK
  6. PAXIL [Concomitant]
     Dosage: UNK
  7. HYDROCODONE BITARTRATE [Concomitant]
     Dosage: UNK

REACTIONS (1)
  - DRUG INEFFECTIVE [None]
